FAERS Safety Report 7123020-5 (Version None)
Quarter: 2010Q4

REPORT INFORMATION
  Report Type: 
  Country: None (occurrence: None)
  Receive Date: 20101124
  Receipt Date: 20101026
  Transmission Date: 20110411
  Serious: Yes (Other)
  Sender: FDA-Public Use
  Company Number: US-AMGEN-USASP2010001865

PATIENT

DRUGS (14)
  1. PROCRIT [Suspect]
     Indication: APLASTIC ANAEMIA
     Dosage: 40000 UNIT, QWK
     Route: 058
     Dates: start: 20040415
  2. OSCAL                              /00108001/ [Concomitant]
     Dosage: 500 MG, QD
     Dates: start: 20100101
  3. MAGNESIUM OXIDE [Concomitant]
     Dosage: 400 MG, QD
     Dates: start: 20100101
  4. MULTIVITAMIN                       /00097801/ [Concomitant]
     Dosage: UNK
     Dates: start: 20100601
  5. NORVASC [Concomitant]
     Dosage: 10 MG, QD
     Dates: start: 20040101
  6. TOPROL-XL [Concomitant]
     Dosage: 100 MG, UNK
     Route: 048
     Dates: start: 20040101
  7. PRAVACHOL [Concomitant]
     Dosage: 40 MG, BID
     Route: 048
     Dates: start: 20040701
  8. ALLOPURINOL [Concomitant]
     Dosage: 300 MG, QD
     Dates: start: 19990101
  9. TRICOR [Concomitant]
     Dosage: 395 MG, UNK
  10. PREVACID [Concomitant]
     Dosage: 30 MG, PRN
  11. CELEXA [Concomitant]
     Dosage: 20 MG, QD
     Route: 048
  12. LASIX [Concomitant]
     Dosage: 20 MG, BID
     Route: 048
     Dates: start: 20090801
  13. OXYCODONE HCL [Concomitant]
     Dosage: 5 MG, PRN
     Route: 048
  14. DURAGESIC-100 [Concomitant]
     Dosage: 23 A?G, PRN

REACTIONS (3)
  - DIABETES MELLITUS [None]
  - FUNGAL INFECTION [None]
  - HEART TRANSPLANT [None]
